FAERS Safety Report 5255984-9 (Version None)
Quarter: 2007Q1

REPORT INFORMATION
  Report Type: 
  Country: None (occurrence: None)
  Receive Date: 20070302
  Receipt Date: 20070302
  Transmission Date: 20070707
  Serious: Yes (Hospitalization)
  Sender: FDA-Public Use
  Company Number: None

PATIENT
  Age: 41 Year
  Sex: Female
  Weight: 41 kg

DRUGS (4)
  1. ULTRAM [Suspect]
     Indication: PAIN
     Dosage: 1-2  -50MG-  TABLETS   Q4-6 PRN PAIN  PO  (DURATION 1X; ALL AT ONCE)
     Route: 048
  2. WELLBUTRIN [Suspect]
     Indication: SELF-MEDICATION
     Dosage: PO   (DURATION:  1X; NOT PATIENT'S MED)
     Route: 048
  3. TRAMADOL HCL [Concomitant]
  4. FLUOXETINE [Concomitant]

REACTIONS (5)
  - ATRIAL FIBRILLATION [None]
  - CONVULSION [None]
  - INCORRECT DOSE ADMINISTERED [None]
  - MENTAL STATUS CHANGES [None]
  - PNEUMONIA ASPIRATION [None]
